FAERS Safety Report 16773492 (Version 1)
Quarter: 2019Q3

REPORT INFORMATION
  Report Type: Spontaneous
  Country: US (occurrence: US)
  Receive Date: 20190904
  Receipt Date: 20190904
  Transmission Date: 20191005
  Serious: No
  Sender: FDA-Public Use
  Company Number: US-TEVA-2019-US-1100877

PATIENT
  Sex: Female
  Weight: 39 kg

DRUGS (1)
  1. NUVIGIL [Suspect]
     Active Substance: ARMODAFINIL
     Indication: SLEEP APNOEA SYNDROME
     Route: 065

REACTIONS (5)
  - Drug ineffective [Unknown]
  - Product substitution issue [Unknown]
  - Dysphagia [Unknown]
  - Feeling abnormal [Unknown]
  - Headache [Unknown]
